FAERS Safety Report 4486376-8 (Version None)
Quarter: 2004Q4

REPORT INFORMATION
  Report Type: 
  Country: None (occurrence: None)
  Receive Date: 20041022
  Receipt Date: 20041008
  Transmission Date: 20050328
  Serious: Yes (Other)
  Sender: FDA-Public Use
  Company Number: 200414840BCC

PATIENT
  Age: 90 Year
  Sex: Male
  Weight: 68.0396 kg

DRUGS (3)
  1. ALEVE [Suspect]
     Indication: ARTHRITIS
     Dosage: 220 MG, BID, ORAL
     Route: 048
  2. ALEVE [Suspect]
     Indication: PAIN
     Dosage: 220 MG, BID, ORAL
     Route: 048
  3. MECLIZINE [Concomitant]

REACTIONS (4)
  - ACCIDENT [None]
  - BLOOD PRESSURE INCREASED [None]
  - DIZZINESS [None]
  - FALL [None]
